FAERS Safety Report 25456506 (Version 1)
Quarter: 2025Q2

REPORT INFORMATION
  Report Type: Spontaneous
  Country: US (occurrence: US)
  Receive Date: 20250619
  Receipt Date: 20250619
  Transmission Date: 20250717
  Serious: No
  Sender: BOEHRINGER INGELHEIM
  Company Number: US-Komodo Health-a23aa000008J6oHAAS

PATIENT
  Sex: Female

DRUGS (2)
  1. TRADJENTA [Suspect]
     Active Substance: LINAGLIPTIN
     Indication: Product used for unknown indication
  2. TRADJENTA [Suspect]
     Active Substance: LINAGLIPTIN

REACTIONS (1)
  - Dysphagia [Not Recovered/Not Resolved]
